FAERS Safety Report 12520301 (Version 1)
Quarter: 2016Q2

REPORT INFORMATION
  Report Type: Spontaneous
  Country: US (occurrence: None)
  Receive Date: 20160630
  Receipt Date: 20160630
  Transmission Date: 20160815
  Serious: Yes (Death)
  Sender: FDA-Public Use
  Company Number: None

PATIENT
  Age: 53 Year
  Sex: Female
  Weight: 81.7 kg

DRUGS (2)
  1. DEPO-MEDROL [Suspect]
     Active Substance: METHYLPREDNISOLONE ACETATE
     Indication: HYPERSENSITIVITY
     Route: 030
     Dates: start: 20160615
  2. SOLU-MEDROL [Suspect]
     Active Substance: METHYLPREDNISOLONE SODIUM SUCCINATE
     Indication: HYPERSENSITIVITY
     Route: 030
     Dates: start: 20160615

REACTIONS (10)
  - Injection site pain [None]
  - Necrotising fasciitis [None]
  - White blood cell count increased [None]
  - Blood lactic acid increased [None]
  - Injection site swelling [None]
  - Injection site induration [None]
  - Injection site erythema [None]
  - Confusional state [None]
  - General physical health deterioration [None]
  - Radial pulse decreased [None]

NARRATIVE: CASE EVENT DATE: 20160618
